FAERS Safety Report 10017981 (Version 1)
Quarter: 2014Q1

REPORT INFORMATION
  Report Type: Spontaneous
  Country: FR (occurrence: FR)
  Receive Date: 20140318
  Receipt Date: 20140318
  Transmission Date: 20141002
  Serious: Yes (Disabling)
  Sender: FDA-Public Use
  Company Number: FR-TEVA-467282ISR

PATIENT
  Age: 55 Year
  Sex: Female

DRUGS (15)
  1. DOXORUBICINE TEVA [Suspect]
     Indication: B-CELL LYMPHOMA
     Dosage: 90 MILLIGRAM DAILY; FIRST COURSE OF CHEMOTHERAPY WITH R-CHOP PROTOCOL
     Route: 042
     Dates: start: 20120426, end: 20120426
  2. DOXORUBICINE TEVA [Suspect]
     Dosage: 90 MILLIGRAM DAILY; SECOND COURSE OF CHEMOTHERAPY WITH R-CHOP PROTOCOL
     Route: 042
     Dates: start: 20120510, end: 20120510
  3. DOXORUBICINE TEVA [Suspect]
     Dosage: 90 MILLIGRAM DAILY; THIRD COURSE OF CHEMOTHERAPY
     Route: 042
     Dates: start: 20120524, end: 20120524
  4. VINCRISTINE [Suspect]
     Indication: B-CELL LYMPHOMA
     Dosage: 2 MILLIGRAM DAILY; FIRST COURSE OF CHEMOTHERAPY WITH R-CHOP PROTOCOL
     Route: 042
     Dates: start: 20120426, end: 20120426
  5. VINCRISTINE [Suspect]
     Dosage: 2 MILLIGRAM DAILY; SECOND COURSE OF CHEMOTHERAPY WITH R-CHOP PROTOCOL
     Route: 042
     Dates: start: 20120510, end: 20120510
  6. VINCRISTINE [Suspect]
     Dosage: 1 MILLIGRAM DAILY; THIRD COURSE OF CHEMOTHERAPY WITH R-CHOP PROTOCOL
     Route: 042
     Dates: start: 20120524, end: 20120524
  7. ENDOXAN [Suspect]
     Indication: B-CELL LYMPHOMA
     Dosage: 1340 MILLIGRAM DAILY; FIRST COURSE OF CHEMOTHERAPY WITH R-CHOP PROTOCOL
     Route: 042
     Dates: start: 20120426, end: 20120426
  8. ENDOXAN [Suspect]
     Dosage: 1340 MILLIGRAM DAILY; SECOND COURSE OF CHEMOTHERAPY WITH R-CHOP PROTOCOL
     Route: 042
     Dates: start: 20120510, end: 20120510
  9. ENDOXAN [Suspect]
     Dosage: 1340 MILLIGRAM DAILY; THIRD COURSE OF CHEMOTHERAPY WITH R-CHOP PROTOCOL
     Route: 042
     Dates: start: 20120524, end: 20120524
  10. RITUXIMAB [Concomitant]
     Indication: B-CELL LYMPHOMA
     Dosage: 650 MILLIGRAM DAILY; FIRST COURSE OF CHEMOTHERAPY WITH R-CHOP PROTOCOL
     Dates: start: 20120426, end: 20120426
  11. RITUXIMAB [Concomitant]
     Dosage: 650 MILLIGRAM DAILY; SECOND COURSE OF CHEMOTHERAPY WITH R-CHOP PROTOCOL
     Route: 042
     Dates: start: 20120510, end: 20120510
  12. RITUXIMAB [Concomitant]
     Dosage: 650 MILLIGRAM DAILY; THIRD COURSE OF CHEMOTHERAPY WITH R-CHOP PROTOCOL
     Route: 042
     Dates: start: 20120525, end: 20120525
  13. PREDNISONE [Concomitant]
     Indication: B-CELL LYMPHOMA
     Dosage: 70 MILLIGRAM DAILY; FIRST COURSE OF CHEMOTHERAPY WITH R-CHOP PROTOCOL
     Dates: start: 20120426, end: 20120426
  14. PREDNISONE [Concomitant]
     Dosage: 70 MILLIGRAM DAILY; SECOND COURSE OF CHEMOTHERAPY WITH R-CHOP PROTOCOL
     Dates: start: 20120510, end: 20120510
  15. PREDNISONE [Concomitant]
     Dosage: 70 MILLIGRAM DAILY; THIRD COURSE OF CHEMOTHERAPY WITH R-CHOP PROTOCOL
     Dates: start: 20120524, end: 20120524

REACTIONS (6)
  - Palmar-plantar erythrodysaesthesia syndrome [Recovering/Resolving]
  - Paraesthesia [Recovered/Resolved]
  - Erythema [Recovering/Resolving]
  - Pain in extremity [Recovering/Resolving]
  - Gait disturbance [Recovered/Resolved]
  - Oedema [Recovering/Resolving]
